FAERS Safety Report 19400157 (Version 6)
Quarter: 2022Q1

REPORT INFORMATION
  Report Type: Spontaneous
  Country: AR (occurrence: AR)
  Receive Date: 20210610
  Receipt Date: 20220228
  Transmission Date: 20220424
  Serious: Yes (Other)
  Sender: FDA-Public Use
  Company Number: AR-PFIZER INC-2021630154

PATIENT
  Age: 81 Year
  Sex: Female

DRUGS (5)
  1. SUTENT [Suspect]
     Active Substance: SUNITINIB MALATE
     Indication: Gastrointestinal stromal tumour
     Dosage: 37.5 MG, CYCLIC (DAILY, 2/1 REST)
     Dates: start: 20191204, end: 2020
  2. SUTENT [Suspect]
     Active Substance: SUNITINIB MALATE
     Dosage: 37.5 MG, CYCLIC (DAILY, 4/2 REST)
     Dates: start: 2020, end: 202104
  3. SUTENT [Suspect]
     Active Substance: SUNITINIB MALATE
     Dosage: 37.5 MG, CYCLIC (DAILY, 4/2 REST)
     Dates: start: 2020, end: 202104
  4. SUTENT [Suspect]
     Active Substance: SUNITINIB MALATE
     Dosage: UNK, 14 DAYS AND RESTED 7
     Route: 048
     Dates: start: 20210928, end: 20211011
  5. FILGRASTIM [Concomitant]
     Active Substance: FILGRASTIM

REACTIONS (12)
  - Escherichia urinary tract infection [Not Recovered/Not Resolved]
  - Hypothyroidism [Unknown]
  - Anaemia [Unknown]
  - White blood cell count decreased [Unknown]
  - Platelet count decreased [Unknown]
  - Renal disorder [Unknown]
  - Decreased immune responsiveness [Unknown]
  - Herpes zoster [Unknown]
  - Oral pain [Unknown]
  - Oral discomfort [Unknown]
  - Stomatitis [Unknown]
  - Memory impairment [Unknown]

NARRATIVE: CASE EVENT DATE: 20210401
